FAERS Safety Report 5384008-8 (Version None)
Quarter: 2007Q3

REPORT INFORMATION
  Report Type: 
  Country: None (occurrence: None)
  Receive Date: 20070711
  Receipt Date: 20070620
  Transmission Date: 20080115
  Serious: No
  Sender: FDA-Public Use
  Company Number: GT-AVENTIS-200715644GDDC

PATIENT
  Age: 31 Year
  Sex: Female
  Weight: 41 kg

DRUGS (1)
  1. ARAVA [Suspect]
     Indication: ARTHRITIS
     Route: 048
     Dates: start: 20070419, end: 20070605

REACTIONS (1)
  - DRUG EXPOSURE DURING PREGNANCY [None]
